FAERS Safety Report 6752970-4 (Version None)
Quarter: 2010Q2

REPORT INFORMATION
  Report Type: 
  Country: None (occurrence: None)
  Receive Date: 20100602
  Receipt Date: 20100602
  Transmission Date: 20101027
  Serious: Yes (Life-Threatening, Hospitalization, Other)
  Sender: FDA-Public Use
  Company Number: None

PATIENT
  Age: 44 Year
  Sex: Female
  Weight: 73.4827 kg

DRUGS (2)
  1. LYRICA [Suspect]
     Indication: FIBROMYALGIA
     Dosage: 75MG 1 TAB BID PO 150MG BID PO
     Route: 048
     Dates: start: 20050101, end: 20090101
  2. LYRICA [Suspect]
     Indication: FIBROMYALGIA
     Dosage: 75MG 1 TAB BID PO 150MG BID PO
     Route: 048
     Dates: start: 20090101, end: 20100101

REACTIONS (3)
  - OEDEMA PERIPHERAL [None]
  - RHABDOMYOLYSIS [None]
  - WEIGHT INCREASED [None]
